FAERS Safety Report 7051650-8 (Version None)
Quarter: 2010Q4

REPORT INFORMATION
  Report Type: 
  Country: None (occurrence: None)
  Receive Date: 20101019
  Receipt Date: 20101007
  Transmission Date: 20110411
  Serious: Yes (Death, Hospitalization)
  Sender: FDA-Public Use
  Company Number: JP-ROCHE-733314

PATIENT
  Age: 58 Year
  Sex: Male

DRUGS (4)
  1. AVASTIN [Suspect]
     Indication: LARGE INTESTINE CARCINOMA
     Route: 041
     Dates: start: 20080701, end: 20090501
  2. ELPLAT [Suspect]
     Indication: LARGE INTESTINE CARCINOMA
     Dosage: DOSAGE UNCERTAIN
     Route: 041
  3. LEUCOVORIN CALCIUM [Concomitant]
     Dosage: DOSAGE UNCERTAIN
     Route: 041
  4. FLUOROURACIL [Concomitant]
     Dosage: DOSAGE UNCERTAIN
     Route: 041

REACTIONS (2)
  - DISEASE PROGRESSION [None]
  - POLYMYOSITIS [None]
